FAERS Safety Report 22145980 (Version 8)
Quarter: 2023Q2

REPORT INFORMATION
  Report Type: Spontaneous
  Country: CA (occurrence: CA)
  Receive Date: 20230328
  Receipt Date: 20230620
  Transmission Date: 20230721
  Serious: Yes (Other)
  Sender: FDA-Public Use
  Company Number: CA-PFIZER INC-202300128722

PATIENT
  Age: 41 Year
  Sex: Female

DRUGS (2)
  1. ABRILADA [Suspect]
     Active Substance: ADALIMUMAB-AFZB
     Indication: Juvenile idiopathic arthritis
     Dosage: 40 MG EVERY 2 WEEK, PREFILLED SYRINGE
     Route: 058
     Dates: start: 20220510
  2. ABRILADA [Suspect]
     Active Substance: ADALIMUMAB-AFZB
     Dosage: UNK
     Route: 058
     Dates: start: 20230530

REACTIONS (5)
  - Limb injury [Recovering/Resolving]
  - Postoperative wound infection [Recovering/Resolving]
  - Purulent discharge [Recovering/Resolving]
  - Arthralgia [Not Recovered/Not Resolved]
  - Condition aggravated [Not Recovered/Not Resolved]

NARRATIVE: CASE EVENT DATE: 20230101
